FAERS Safety Report 10244773 (Version 1)
Quarter: 2014Q2

REPORT INFORMATION
  Report Type: Spontaneous
  Country: FR (occurrence: FR)
  Receive Date: 20140618
  Receipt Date: 20140618
  Transmission Date: 20141212
  Serious: Yes (Other)
  Sender: FDA-Public Use
  Company Number: FR-BRISTOL-MYERS SQUIBB COMPANY-20983706

PATIENT
  Age: 72 Year
  Sex: Female

DRUGS (4)
  1. HYDREA [Suspect]
     Indication: CHRONIC MYELOMONOCYTIC LEUKAEMIA
     Route: 048
     Dates: start: 201404
  2. ACTISKENAN [Suspect]
     Route: 048
     Dates: start: 201403
  3. ALLOPURINOL [Suspect]
     Route: 048
     Dates: start: 201404
  4. IXPRIM [Suspect]
     Route: 048
     Dates: start: 201403

REACTIONS (1)
  - Vascular purpura [Unknown]
